FAERS Safety Report 8843159 (Version 1)
Quarter: 2012Q4

REPORT INFORMATION
  Report Type: 
  Country: US (occurrence: US)
  Receive Date: 20121016
  Receipt Date: 20121016
  Transmission Date: 20130627
  Serious: Yes (Hospitalization, Other)
  Sender: FDA-Public Use
  Company Number: US-PFIZER INC-2012257002

PATIENT
  Age: 32 Year
  Sex: Female
  Weight: 44.44 kg

DRUGS (4)
  1. XANAX XR [Suspect]
     Indication: ANXIETY
     Dosage: 0.5 mg, daily
     Dates: start: 2011
  2. ATIVAN [Suspect]
     Indication: ANXIETY
     Dosage: UNK, as needed (quarter of 1mg tablet)
     Dates: start: 2011
  3. IRON [Concomitant]
     Indication: SUPPLEMENTATION THERAPY
     Dosage: UNK
  4. MIRTAZAPINE [Concomitant]
     Indication: GASTROINTESTINAL PAIN
     Dosage: UNK, daily
     Dates: start: 2011

REACTIONS (6)
  - Loss of consciousness [Recovered/Resolved]
  - Mental impairment [Not Recovered/Not Resolved]
  - Memory impairment [Not Recovered/Not Resolved]
  - Dissociation [Not Recovered/Not Resolved]
  - Insomnia [Not Recovered/Not Resolved]
  - Fatigue [Not Recovered/Not Resolved]
